FAERS Safety Report 7817355-8 (Version None)
Quarter: 2011Q4

REPORT INFORMATION
  Report Type: 
  Country: None (occurrence: None)
  Receive Date: 20111017
  Receipt Date: 20111004
  Transmission Date: 20120403
  Serious: Yes (Hospitalization, Other)
  Sender: FDA-Public Use
  Company Number: US-ELI_LILLY_AND_COMPANY-US201101000737

PATIENT
  Sex: Female

DRUGS (15)
  1. FORTEO [Suspect]
     Indication: OSTEOPOROSIS
     Dosage: 20 UG, DAILY (1/D)
     Route: 058
  2. OXYCODONE HCL [Concomitant]
     Dosage: UNK, 2/D
     Route: 065
  3. CALCIUM CARBONATE [Concomitant]
     Dosage: UNK, UNKNOWN
     Route: 065
  4. PREMPRO [Concomitant]
     Dosage: UNK, UNKNOWN
     Route: 065
  5. ADVAIR DISKUS 100/50 [Concomitant]
     Dosage: UNK, UNKNOWN
     Route: 065
  6. PROMETHAZINE [Concomitant]
     Indication: NAUSEA
     Dosage: UNK, UNKNOWN
     Route: 065
  7. ACIDOPHILUS [Concomitant]
     Dosage: UNK, UNKNOWN
     Route: 065
  8. ALBUTEROL [Concomitant]
     Dosage: UNK, UNKNOWN
     Route: 065
  9. CYMBALTA [Concomitant]
     Dosage: UNK, UNKNOWN
     Route: 065
  10. LEVOTHYROXINE SODIUM [Concomitant]
     Dosage: UNK, UNKNOWN
     Route: 065
  11. ASPIRIN [Concomitant]
     Dosage: UNK, DAILY (1/D)
     Route: 065
  12. LABETALOL HCL [Concomitant]
     Indication: BLOOD PRESSURE
     Dosage: UNK, UNKNOWN
     Route: 065
  13. FORTEO [Suspect]
     Dosage: 20 UG, DAILY (1/D)
     Route: 058
  14. VITAMIN D [Concomitant]
     Dosage: UNK, UNKNOWN
     Route: 065
  15. SPIRIVA [Concomitant]
     Dosage: UNK, UNKNOWN
     Route: 065

REACTIONS (7)
  - DYSPNOEA [None]
  - BACK DISORDER [None]
  - HOSPICE CARE [None]
  - CARDIAC FAILURE CONGESTIVE [None]
  - ARTHRALGIA [None]
  - CHOKING [None]
  - BACK PAIN [None]
